FAERS Safety Report 7968256-6 (Version None)
Quarter: 2011Q4

REPORT INFORMATION
  Report Type: 
  Country: None (occurrence: None)
  Receive Date: 20111209
  Receipt Date: 20110919
  Transmission Date: 20120403
  Serious: Yes (Other)
  Sender: FDA-Public Use
  Company Number: US-BAYER-2011-088229

PATIENT
  Sex: Female

DRUGS (3)
  1. YAZ [Suspect]
  2. DROSPIRENONE AND ETHINYL ESTRADIOL [Suspect]
     Dosage: UNK
     Dates: start: 20080701
  3. YASMIN [Suspect]
     Dosage: UNK
     Dates: start: 20070401

REACTIONS (3)
  - INJURY [None]
  - GALLBLADDER INJURY [None]
  - PAIN [None]
